FAERS Safety Report 10251803 (Version 4)
Quarter: 2016Q3

REPORT INFORMATION
  Report Type: Report from Study
  Country: MX (occurrence: MX)
  Receive Date: 20140623
  Receipt Date: 20160815
  Transmission Date: 20161109
  Serious: Yes (Disabling)
  Sender: FDA-Public Use
  Company Number: MX-ROCHE-1422244

PATIENT
  Age: 39 Year
  Sex: Female
  Weight: 60 kg

DRUGS (7)
  1. ROACTEMRA [Suspect]
     Active Substance: TOCILIZUMAB
     Route: 042
     Dates: start: 201311, end: 201405
  2. DICLOFENAC [Concomitant]
     Active Substance: DICLOFENAC
     Dosage: 1 TABLET EVERY 12 HOURS AS REQUIRED
     Route: 048
  3. DICLOFENAC [Concomitant]
     Active Substance: DICLOFENAC
     Dosage: FOR ONE DAY
     Route: 065
  4. ROACTEMRA [Suspect]
     Active Substance: TOCILIZUMAB
     Indication: RHEUMATOID ARTHRITIS
     Route: 042
     Dates: start: 201206, end: 201311
  5. ROACTEMRA [Suspect]
     Active Substance: TOCILIZUMAB
     Route: 042
     Dates: start: 201405, end: 20160808
  6. PREDNISONE. [Concomitant]
     Active Substance: PREDNISONE
     Route: 048
  7. RANTUDIL RETARD [Concomitant]
     Indication: RHEUMATOID ARTHRITIS
     Route: 048
     Dates: start: 201405

REACTIONS (6)
  - Oedema peripheral [Recovering/Resolving]
  - Bone pain [Recovering/Resolving]
  - Oedema [Recovering/Resolving]
  - Muscle rigidity [Recovered/Resolved]
  - Fatigue [Recovering/Resolving]
  - Stress at work [Recovered/Resolved]

NARRATIVE: CASE EVENT DATE: 201404
